FAERS Safety Report 4976153-3 (Version None)
Quarter: 2006Q2

REPORT INFORMATION
  Report Type: 
  Country: None (occurrence: None)
  Receive Date: 20060410
  Receipt Date: 20060331
  Transmission Date: 20061013
  Serious: Yes (Life-Threatening, Hospitalization)
  Sender: FDA-Public Use
  Company Number: TCI2005A03586

PATIENT
  Age: 67 Year
  Sex: Female

DRUGS (4)
  1. ACTOS [Suspect]
     Indication: DIABETES MELLITUS NON-INSULIN-DEPENDENT
     Dosage: 30 MG (30 MG, 1 IN 1 D)
     Route: 048
     Dates: start: 20010219, end: 20050813
  2. TCV-116 (CANDESARTAN CILEXETIL) [Suspect]
     Indication: DIABETIC NEPHROPATHY
     Dosage: 4 MG (4 MG, 1 IN 1 D)
     Route: 048
     Dates: start: 20050328, end: 20050813
  3. EUGLUCON (GLIBENCLAMIDE) [Concomitant]
  4. HYPOCA (BARNIDIPINE) [Concomitant]

REACTIONS (17)
  - ATRIAL FIBRILLATION [None]
  - ATRIAL FLUTTER [None]
  - BRADYCARDIA [None]
  - CARDIAC ARREST [None]
  - CARDIAC FAILURE ACUTE [None]
  - CARDIAC MURMUR [None]
  - CONDITION AGGRAVATED [None]
  - ELECTROCARDIOGRAM ST SEGMENT ELEVATION [None]
  - ELECTROCARDIOGRAM T WAVE INVERSION [None]
  - EXTRASYSTOLES [None]
  - HYPERTENSIVE EMERGENCY [None]
  - MYOCARDIAL INFARCTION [None]
  - NODAL RHYTHM [None]
  - PNEUMONIA [None]
  - PULMONARY OEDEMA [None]
  - RESPIRATORY ARREST [None]
  - VISUAL ACUITY REDUCED [None]
